FAERS Safety Report 8995364 (Version 1)
Quarter: 2013Q1

REPORT INFORMATION
  Report Type: Spontaneous
  Country: US (occurrence: US)
  Receive Date: 20130103
  Receipt Date: 20130103
  Transmission Date: 20140127
  Serious: No
  Sender: FDA-Public Use
  Company Number: US-ABBOTT-12P-163-0919911-00

PATIENT
  Age: 77 Year
  Sex: Male
  Weight: 77.18 kg

DRUGS (2)
  1. SYNTHROID [Suspect]
     Indication: HYPOTHYROIDISM
     Dates: start: 1959
  2. ATACAND [Concomitant]
     Indication: HYPERTENSION

REACTIONS (3)
  - Abdominal pain [Not Recovered/Not Resolved]
  - Product tampering [Unknown]
  - Tablet physical issue [Unknown]
